FAERS Safety Report 12879507 (Version 1)
Quarter: 2016Q4

REPORT INFORMATION
  Report Type: Other
  Country: DE (occurrence: DE)
  Receive Date: 20161025
  Receipt Date: 20161025
  Transmission Date: 20170207
  Serious: No
  Sender: FDA-Public Use
  Company Number: DE-LUPIN PHARMACEUTICALS INC.-2015-04328

PATIENT
  Age: 83 Year
  Sex: Male

DRUGS (2)
  1. METRONIDAZOLE. [Suspect]
     Active Substance: METRONIDAZOLE
     Indication: INCISIONAL HERNIA
     Route: 065
  2. CEFTRIAXONE. [Suspect]
     Active Substance: CEFTRIAXONE
     Indication: INCISIONAL HERNIA
     Route: 065

REACTIONS (1)
  - Factor V inhibition [Unknown]
